FAERS Safety Report 23043218 (Version 1)
Quarter: 2023Q4

REPORT INFORMATION
  Report Type: Report from Study
  Country: US (occurrence: US)
  Receive Date: 20231009
  Receipt Date: 20231009
  Transmission Date: 20240110
  Serious: No
  Sender: FDA-Public Use
  Company Number: US-002147023-NVSC2023US211741

PATIENT
  Sex: Female
  Weight: 111.58 kg

DRUGS (5)
  1. COSENTYX [Suspect]
     Active Substance: SECUKINUMAB
     Indication: Psoriasis
     Route: 065
  2. CLOBETASOL [Suspect]
     Active Substance: CLOBETASOL
     Indication: Psoriasis
     Route: 065
  3. CLOTRIMAZOLE [Suspect]
     Active Substance: CLOTRIMAZOLE
     Indication: Psoriasis
     Route: 065
  4. MUPIROCIN [Suspect]
     Active Substance: MUPIROCIN
     Indication: Psoriasis
     Route: 065
  5. NYSTATIN [Suspect]
     Active Substance: NYSTATIN
     Indication: Psoriasis
     Route: 065

REACTIONS (4)
  - Therapeutic product effect incomplete [Unknown]
  - Rash erythematous [Unknown]
  - Papule [Unknown]
  - Skin exfoliation [Unknown]
